FAERS Safety Report 21691747 (Version 1)
Quarter: 2022Q4

REPORT INFORMATION
  Report Type: Spontaneous
  Country: UZ (occurrence: UZ)
  Receive Date: 20221207
  Receipt Date: 20221207
  Transmission Date: 20230113
  Serious: Yes (Other)
  Sender: FDA-Public Use
  Company Number: UZ-TEVA-2022-UZ-2073472

PATIENT
  Age: 70 Year
  Sex: Female

DRUGS (1)
  1. BECLOMETHASONE DIPROPIONATE [Suspect]
     Active Substance: BECLOMETHASONE DIPROPIONATE
     Indication: Product used for unknown indication
     Route: 065

REACTIONS (5)
  - Cyanosis [Unknown]
  - Cardiac disorder [Unknown]
  - Blood disorder [Unknown]
  - Gait inability [Unknown]
  - Product formulation issue [Unknown]
